FAERS Safety Report 24079640 (Version 1)
Quarter: 2024Q3

REPORT INFORMATION
  Report Type: Spontaneous
  Country: FR (occurrence: None)
  Receive Date: 20240711
  Receipt Date: 20240711
  Transmission Date: 20241017
  Serious: Yes (Other)
  Sender: ASTRAZENECA
  Company Number: 2024A158279

PATIENT
  Sex: Female

DRUGS (1)
  1. DURVALUMAB [Suspect]
     Active Substance: DURVALUMAB
     Indication: Non-small cell lung cancer
     Route: 042

REACTIONS (6)
  - Haematotoxicity [Unknown]
  - Pneumonitis [Unknown]
  - Oesophagitis [Unknown]
  - Constipation [Unknown]
  - Weight decreased [Unknown]
  - Hyperthyroidism [Unknown]
